FAERS Safety Report 11217468 (Version 1)
Quarter: 2015Q2

REPORT INFORMATION
  Report Type: Spontaneous
  Country: DE (occurrence: DE)
  Receive Date: 20150625
  Receipt Date: 20150625
  Transmission Date: 20150821
  Serious: Yes (Hospitalization, Other)
  Sender: FDA-Public Use
  Company Number: DE-AUROBINDO-AUR-APL-2015-05265

PATIENT
  Age: 1 Day
  Sex: Female
  Weight: 3.6 kg

DRUGS (4)
  1. UTROGEST [Concomitant]
     Active Substance: PROGESTERONE
     Indication: PROPHYLAXIS OF ABORTION
     Dosage: 100 MG, TWO TIMES A DAY
     Route: 064
  2. PREDNISON [Concomitant]
     Active Substance: PREDNISONE
     Indication: PROPHYLAXIS OF ABORTION
     Dosage: 5 MG, ONCE A DAY
     Route: 064
  3. SERTRALINE [Suspect]
     Active Substance: SERTRALINE HYDROCHLORIDE
     Indication: DEPRESSION
     Dosage: 100 MG, ONCE A DAY, 100 MGLD MAYBE REDUCTION TO 50 MGLD IN GW 33+6).
     Route: 064
     Dates: start: 20140418, end: 20150113
  4. L-THYROX [Concomitant]
     Active Substance: LEVOTHYROXINE SODIUM
     Indication: HYPOTHYROIDISM
     Dosage: 150 ?G/DL, DOSAGE BETWEEN
     Route: 064
     Dates: start: 20140418, end: 20150113

REACTIONS (6)
  - Foetal exposure during pregnancy [Recovered/Resolved]
  - Cyanosis [Recovered/Resolved]
  - Apnoea neonatal [Recovered/Resolved]
  - Oxygen saturation decreased [Recovered/Resolved]
  - Respiratory disorder neonatal [Recovered/Resolved]
  - Hypotonia [Recovered/Resolved]

NARRATIVE: CASE EVENT DATE: 20150113
